FAERS Safety Report 23859363 (Version 1)
Quarter: 2024Q2

REPORT INFORMATION
  Report Type: Report from Study
  Country: HN (occurrence: HN)
  Receive Date: 20240515
  Receipt Date: 20240515
  Transmission Date: 20240716
  Serious: Yes (Other)
  Sender: FDA-Public Use
  Company Number: HN-002147023-NVSC2024HN102139

PATIENT
  Sex: Male

DRUGS (3)
  1. METFORMIN HYDROCHLORIDE\VILDAGLIPTIN [Suspect]
     Active Substance: METFORMIN HYDROCHLORIDE\VILDAGLIPTIN
     Indication: Diabetes mellitus
     Dosage: 1 DOSAGE FORM, BID (50/850 MG)
     Route: 048
     Dates: start: 202001
  2. EXFORGE HCT [Suspect]
     Active Substance: AMLODIPINE BESYLATE\HYDROCHLOROTHIAZIDE\VALSARTAN
     Indication: Hypertension
     Dosage: UNK (10/160/12.5 MG) (INDICATE NOT CONSUMING IT)
     Route: 048
  3. VILDAGLIPTIN [Suspect]
     Active Substance: VILDAGLIPTIN
     Indication: Diabetes mellitus
     Dosage: UNK
     Route: 048

REACTIONS (13)
  - Anxiety [Not Recovered/Not Resolved]
  - Phobia [Not Recovered/Not Resolved]
  - Dyspnoea [Not Recovered/Not Resolved]
  - Panic reaction [Not Recovered/Not Resolved]
  - Tension [Unknown]
  - Insomnia [Unknown]
  - Hunger [Unknown]
  - Throat tightness [Unknown]
  - Heart rate increased [Unknown]
  - Diabetes mellitus [Unknown]
  - Weight decreased [Unknown]
  - Decreased appetite [Unknown]
  - Blood pressure abnormal [Unknown]
